FAERS Safety Report 19310756 (Version 2)
Quarter: 2021Q2

REPORT INFORMATION
  Report Type: Spontaneous
  Country: US (occurrence: US)
  Receive Date: 20210526
  Receipt Date: 20210617
  Transmission Date: 20210717
  Serious: Yes (Other)
  Sender: FDA-Public Use
  Company Number: US-009507513-2105USA004710

PATIENT
  Age: 63 Year
  Sex: Male

DRUGS (1)
  1. INTEGRILIN [Suspect]
     Active Substance: EPTIFIBATIDE
     Indication: ANTICOAGULANT THERAPY
     Dosage: DOUBLE BOLUS, MANTAINED ON AN INFUSION FOR 18 HOURS

REACTIONS (2)
  - Thrombocytopenia [Recovering/Resolving]
  - Coronary artery thrombosis [Unknown]
